FAERS Safety Report 5291175-3 (Version None)
Quarter: 2007Q2

REPORT INFORMATION
  Report Type: 
  Country: None (occurrence: None)
  Receive Date: 20070409
  Receipt Date: 20070331
  Transmission Date: 20071010
  Serious: Yes (Hospitalization)
  Sender: FDA-Public Use
  Company Number: BR-ROCHE-457813

PATIENT
  Age: 15 Year
  Sex: Male

DRUGS (2)
  1. ISOTRETINOIN [Suspect]
     Indication: ACNE
     Dosage: STRENGTHS REPORTED AS 10+20MG/CAP.
     Route: 048
     Dates: start: 20060315, end: 20060715
  2. ISOTRETINOIN [Suspect]
     Route: 048
     Dates: start: 20060715, end: 20060727

REACTIONS (5)
  - ACUTE LYMPHOCYTIC LEUKAEMIA [None]
  - BONE PAIN [None]
  - DRY EYE [None]
  - LIP DRY [None]
  - MYALGIA [None]
